FAERS Safety Report 13813052 (Version 1)
Quarter: 2017Q3

REPORT INFORMATION
  Report Type: Report from Study
  Country: IT (occurrence: IT)
  Receive Date: 20170729
  Receipt Date: 20170729
  Transmission Date: 20171127
  Serious: Yes (Death, Life-Threatening, Other)
  Sender: FDA-Public Use
  Company Number: IT-AXELLIA-001147

PATIENT
  Age: 80 Year
  Sex: Male

DRUGS (4)
  1. VANCOMYCIN [Suspect]
     Active Substance: VANCOMYCIN
     Indication: STAPHYLOCOCCAL INFECTION
  2. VANCOMYCIN [Suspect]
     Active Substance: VANCOMYCIN
     Indication: CLOSTRIDIUM DIFFICILE COLITIS
  3. CEFTAZIDIME/CEFTAZIDIME PENTAHYDRATE [Suspect]
     Active Substance: CEFTAZIDIME
     Indication: STAPHYLOCOCCAL INFECTION
  4. VANCOMYCIN [Suspect]
     Active Substance: VANCOMYCIN
     Indication: POSTOPERATIVE WOUND INFECTION

REACTIONS (1)
  - Acute kidney injury [Fatal]
